FAERS Safety Report 7131475-5 (Version None)
Quarter: 2010Q4

REPORT INFORMATION
  Report Type: 
  Country: None (occurrence: None)
  Receive Date: 20101124
  Receipt Date: 20101124
  Transmission Date: 20110411
  Serious: No
  Sender: FDA-Public Use
  Company Number: None

PATIENT
  Sex: Female

DRUGS (1)
  1. CEFTRIAXONE [Suspect]
     Indication: PRODUCT USED FOR UNKNOWN INDICATION
     Dosage: 2 GM VIAL (10/PK) INFUSE 2 GRAMS (1 VIAL) INTRAVENOUSLY EVERY DAY
     Route: 042
     Dates: start: 20101119

REACTIONS (3)
  - DIARRHOEA [None]
  - RASH GENERALISED [None]
  - THROAT TIGHTNESS [None]
